FAERS Safety Report 4305286-X (Version None)
Quarter: 2004Q1

REPORT INFORMATION
  Report Type: 
  Country: None (occurrence: None)
  Receive Date: 20040226
  Receipt Date: 20030219
  Transmission Date: 20041129
  Serious: Yes (Other)
  Sender: FDA-Public Use
  Company Number: US-BRISTOL-MYERS SQUIBB COMPANY-12189254

PATIENT
  Age: 59 Year
  Sex: Male

DRUGS (6)
  1. CARBOPLATIN [Suspect]
     Indication: NON-SMALL CELL LUNG CANCER
     Dosage: DOSE = AUC 5
     Route: 042
     Dates: start: 20030101, end: 20030101
  2. TAXOL [Suspect]
     Indication: NON-SMALL CELL LUNG CANCER
     Route: 042
     Dates: start: 20030101
  3. DOLASETRON [Concomitant]
     Indication: PREMEDICATION
     Route: 042
     Dates: start: 20030101
  4. DEXAMETHASONE [Concomitant]
     Indication: PREMEDICATION
     Route: 042
     Dates: start: 20030101
  5. BENADRYL [Concomitant]
     Indication: PREMEDICATION
     Route: 042
     Dates: start: 20030101
  6. GLEEVEC [Concomitant]
     Route: 048
     Dates: start: 20030101

REACTIONS (2)
  - ARTHRALGIA [None]
  - MYALGIA [None]
